FAERS Safety Report 6366440-9 (Version None)
Quarter: 2009Q3

REPORT INFORMATION
  Report Type: 
  Country: None (occurrence: None)
  Receive Date: 20090921
  Receipt Date: 20090908
  Transmission Date: 20100115
  Serious: Yes (Other)
  Sender: FDA-Public Use
  Company Number: GB-ROCHE-655557

PATIENT
  Age: 60 Year
  Sex: Female

DRUGS (5)
  1. TAMIFLU [Suspect]
     Indication: DRUG USE FOR UNKNOWN INDICATION
     Route: 065
     Dates: start: 20090804, end: 20090810
  2. LISINOPRIL [Concomitant]
  3. CANDESARTAN CILEXETIL [Concomitant]
  4. ATORVASTATIN [Concomitant]
  5. CINNARIZINE [Concomitant]

REACTIONS (1)
  - DYSGEUSIA [None]
